FAERS Safety Report 6271084-3 (Version None)
Quarter: 2009Q3

REPORT INFORMATION
  Report Type: 
  Country: None (occurrence: None)
  Receive Date: 20090716
  Receipt Date: 20080908
  Transmission Date: 20100115
  Serious: No
  Sender: FDA-Public Use
  Company Number: US-TYCO HEALTHCARE/MALLINCKRODT-T200801475

PATIENT

DRUGS (13)
  1. OXYCODONE HCL AND ACETAMINOPHEN [Suspect]
     Indication: BACK PAIN
     Dosage: 1 TAB 3X/DAY, PRN
     Route: 048
     Dates: start: 20080201
  2. OXYCODONE HCL AND ACETAMINOPHEN [Suspect]
     Dosage: ADMINISTERED 2 TABS AT ONCE FROM THE NEW REFILL
     Route: 048
     Dates: start: 20080901, end: 20080901
  3. OXYCODONE HCL AND ACETAMINOPHEN [Suspect]
     Dosage: ADMINISTERED ONE TAB FROM AN OLDER PRESCRIPTION
     Route: 048
     Dates: start: 20080908
  4. OPANA ER [Concomitant]
     Indication: ANALGESIA
     Dosage: 2 IN AM, 1 IN PM
     Route: 048
  5. CARISOPRODOL [Concomitant]
     Indication: MUSCLE RELAXANT THERAPY
     Dosage: UNK, PRN
     Route: 048
  6. LUTERA-28 [Concomitant]
     Indication: CONTRACEPTION
     Dosage: UNK, QD
     Route: 048
  7. EFFEXOR [Concomitant]
     Route: 048
  8. BENAZEPRIL HYDROCHLORIDE [Concomitant]
     Indication: BLOOD PRESSURE
     Dosage: 20 MG, QD
     Route: 048
  9. AMLODIPINE [Concomitant]
     Indication: BLOOD PRESSURE
     Dosage: 5 MG, QD
     Route: 048
  10. CHLORPHENIRAMINE MALEATE AND PSEUDOEPHEDRINE HCL [Concomitant]
     Indication: SINUSITIS
     Dosage: 120/8 MG, BID
     Route: 048
  11. SYNTHROID [Concomitant]
     Indication: HYPOTHYROIDISM
     Dosage: .125 MG, QD
     Route: 048
  12. IBUPROFEN [Concomitant]
     Indication: ANALGESIA
     Dosage: UNK, PRN
     Route: 048
  13. UNSPECIFIED STEROID INJECTION [Concomitant]
     Indication: ANALGESIA
     Dosage: Q MONTH
     Dates: start: 20070101

REACTIONS (2)
  - DRUG INEFFECTIVE [None]
  - INCORRECT DOSE ADMINISTERED [None]
